FAERS Safety Report 7217596-7 (Version None)
Quarter: 2011Q1

REPORT INFORMATION
  Report Type: 
  Country: None (occurrence: None)
  Receive Date: 20110110
  Receipt Date: 20110103
  Transmission Date: 20110831
  Serious: Yes (Hospitalization, Other)
  Sender: FDA-Public Use
  Company Number: CA-ROCHE-717928

PATIENT
  Sex: Female

DRUGS (5)
  1. CYCLOPHOSPHAMIDE [Suspect]
     Indication: BREAST CANCER
     Route: 042
     Dates: start: 20100301, end: 20100503
  2. ARIMIDEX [Concomitant]
     Indication: BREAST CANCER
     Route: 048
     Dates: start: 20100301
  3. HERCEPTIN [Suspect]
     Indication: BREAST CANCER
     Route: 042
     Dates: start: 20100301, end: 20100707
  4. TAXOTERE [Suspect]
     Indication: BREAST CANCER
     Route: 042
     Dates: start: 20100301, end: 20100503
  5. HERCEPTIN [Suspect]
     Route: 042
     Dates: start: 20100830, end: 20101126

REACTIONS (7)
  - CHRONIC OBSTRUCTIVE PULMONARY DISEASE [None]
  - BREAST PAIN [None]
  - PULMONARY FIBROSIS [None]
  - PULMONARY TOXICITY [None]
  - MUSCULOSKELETAL PAIN [None]
  - INTERSTITIAL LUNG DISEASE [None]
  - BONE DISORDER [None]
